FAERS Safety Report 19742093 (Version 1)
Quarter: 2021Q3

REPORT INFORMATION
  Report Type: Spontaneous
  Country: AT (occurrence: AT)
  Receive Date: 20210824
  Receipt Date: 20210824
  Transmission Date: 20211014
  Serious: Yes (Other)
  Sender: FDA-Public Use
  Company Number: AT-PFIZER INC-202101031696

PATIENT
  Sex: Female
  Weight: 80 kg

DRUGS (10)
  1. RITUXIMAB. [Suspect]
     Active Substance: RITUXIMAB
     Dosage: UNK
     Route: 065
     Dates: start: 20201029, end: 20210210
  2. POLIVY [Suspect]
     Active Substance: POLATUZUMAB VEDOTIN-PIIQ
     Indication: NON-HODGKIN^S LYMPHOMA
     Dosage: UNK
     Route: 065
     Dates: start: 20201029, end: 20210210
  3. CYCLOPHOSPHAMIDE. [Concomitant]
     Active Substance: CYCLOPHOSPHAMIDE
     Dosage: UNK
     Dates: start: 20190925, end: 20200108
  4. NIVOLUMAB [Concomitant]
     Active Substance: NIVOLUMAB
     Dosage: UNK
     Dates: start: 20210224, end: 20210407
  5. PREDNISOLONE. [Concomitant]
     Active Substance: PREDNISOLONE
     Dosage: UNK
     Dates: start: 20190925, end: 20200108
  6. GLOFITAMAB. [Concomitant]
     Active Substance: GLOFITAMAB
     Dosage: UNK
     Route: 065
  7. RITUXIMAB. [Suspect]
     Active Substance: RITUXIMAB
     Indication: NON-HODGKIN^S LYMPHOMA
     Dosage: UNK
     Route: 065
     Dates: start: 20190925, end: 20200108
  8. BENDAMUSTINE HYDROCHLORIDE. [Suspect]
     Active Substance: BENDAMUSTINE HYDROCHLORIDE
     Indication: NON-HODGKIN^S LYMPHOMA
     Dosage: UNK
     Route: 065
     Dates: start: 20201029, end: 20210210
  9. DOXORUBICIN HYDROCHLORIDE. [Concomitant]
     Active Substance: DOXORUBICIN HYDROCHLORIDE
     Dosage: UNK
     Dates: start: 20190925, end: 20200108
  10. VINCRISTINE [Concomitant]
     Active Substance: VINCRISTINE
     Dosage: UNK
     Dates: start: 20190925, end: 20200108

REACTIONS (16)
  - Alanine aminotransferase decreased [Unknown]
  - Blood sodium decreased [Unknown]
  - Haemoglobin decreased [Unknown]
  - Off label use [Unknown]
  - Red blood cell count decreased [Unknown]
  - Bacterial infection [Unknown]
  - Blood immunoglobulin M decreased [Unknown]
  - Creatinine renal clearance decreased [Unknown]
  - Lymphocyte count decreased [Unknown]
  - Choroidal neovascularisation [Unknown]
  - Glomerular filtration rate decreased [Unknown]
  - Blood lactate dehydrogenase decreased [Unknown]
  - Haematocrit decreased [Unknown]
  - Hypertension [Unknown]
  - Blood immunoglobulin A decreased [Unknown]
  - C-reactive protein decreased [Unknown]
